FAERS Safety Report 23160504 (Version 1)
Quarter: 2023Q4

REPORT INFORMATION
  Report Type: Spontaneous
  Country: FR (occurrence: None)
  Receive Date: 20231108
  Receipt Date: 20231108
  Transmission Date: 20240109
  Serious: Yes (Other)
  Sender: FDA-Public Use
  Company Number: 2023A247180

PATIENT
  Age: 88 Year
  Sex: Male
  Weight: 66 kg

DRUGS (6)
  1. DAPAGLIFLOZIN [Suspect]
     Active Substance: DAPAGLIFLOZIN
     Indication: Chronic kidney disease
     Route: 048
     Dates: start: 202210, end: 202212
  2. IRBESARTAN [Concomitant]
     Active Substance: IRBESARTAN
  3. LATANOPROST [Concomitant]
     Active Substance: LATANOPROST
  4. LOXEN [Concomitant]
  5. AVODART [Concomitant]
     Active Substance: DUTASTERIDE
  6. FUROSEMIDE [Concomitant]
     Active Substance: FUROSEMIDE

REACTIONS (2)
  - Renal failure [Recovered/Resolved]
  - Acute kidney injury [Recovered/Resolved]

NARRATIVE: CASE EVENT DATE: 20221201
